FAERS Safety Report 16973405 (Version 3)
Quarter: 2019Q4

REPORT INFORMATION
  Report Type: Spontaneous
  Country: DE (occurrence: DE)
  Receive Date: 20191030
  Receipt Date: 20191207
  Transmission Date: 20200122
  Serious: Yes (Other)
  Sender: FDA-Public Use
  Company Number: DE-TEVA-2019-DE-1129181

PATIENT
  Age: 76 Year
  Sex: Male
  Weight: 82 kg

DRUGS (7)
  1. JODETTEN 200 [Concomitant]
     Indication: THYROID DISORDER
     Route: 065
  2. LAIF 900 [Concomitant]
     Indication: RESTLESSNESS
     Route: 065
  3. SIMVASTATIN. [Suspect]
     Active Substance: SIMVASTATIN
     Indication: HYPERCHOLESTEROLAEMIA
     Route: 048
     Dates: end: 201907
  4. SIMVASTATIN. [Suspect]
     Active Substance: SIMVASTATIN
     Route: 065
  5. SIMVASTATIN. [Suspect]
     Active Substance: SIMVASTATIN
     Indication: STENT PLACEMENT
     Dosage: 30 MG PER DAY
     Route: 048
     Dates: start: 201907, end: 201910
  6. GODAMED 100 MG ASS TAH [Concomitant]
     Indication: STENT PLACEMENT
  7. THIOCTACID [Concomitant]
     Active Substance: .ALPHA.-LIPOIC ACID
     Indication: POLYNEUROPATHY
     Dosage: 1-0-1
     Route: 065

REACTIONS (6)
  - Aphasia [Recovered/Resolved]
  - Sleep disorder [Recovered/Resolved]
  - Polyneuropathy [Recovered/Resolved]
  - Bone pain [Recovered/Resolved]
  - Myalgia [Recovered/Resolved]
  - Memory impairment [Recovered/Resolved]

NARRATIVE: CASE EVENT DATE: 201907
